FAERS Safety Report 24707803 (Version 1)
Quarter: 2024Q4

REPORT INFORMATION
  Report Type: Spontaneous
  Country: US (occurrence: US)
  Receive Date: 20241206
  Receipt Date: 20241206
  Transmission Date: 20250114
  Serious: No
  Sender: NOVO NORDISK
  Company Number: US-NOVOPROD-1239409

PATIENT
  Age: 90 Year
  Sex: Male

DRUGS (1)
  1. NOVOLIN 70/30 [Suspect]
     Active Substance: INSULIN HUMAN
     Indication: Diabetes mellitus
     Dosage: 60 UNITS IN THE MORNING AND 70 UNITS IN THE AFTERNOON
     Route: 058

REACTIONS (1)
  - Pernicious anaemia [Not Recovered/Not Resolved]

NARRATIVE: CASE EVENT DATE: 19950101
